FAERS Safety Report 8941712 (Version 2)
Quarter: 2013Q1

REPORT INFORMATION
  Report Type: Spontaneous
  Country: FR (occurrence: FR)
  Receive Date: 20121203
  Receipt Date: 20130104
  Transmission Date: 20140127
  Serious: Yes (Other)
  Sender: FDA-Public Use
  Company Number: FR-009507513-1211FRA011565

PATIENT
  Sex: Female
  Weight: 45 kg

DRUGS (2)
  1. NEXPLANON [Suspect]
     Indication: CONTRACEPTION
     Dosage: 1 DF, UNK
     Route: 058
     Dates: start: 201006, end: 20120430
  2. NEXPLANON [Suspect]
     Dosage: 1 DF, UNK
     Route: 058
     Dates: start: 20121212

REACTIONS (1)
  - Pulmonary embolism [Recovered/Resolved]
